FAERS Safety Report 21957140 (Version 1)
Quarter: 2023Q1

REPORT INFORMATION
  Report Type: Report from Study
  Country: CA (occurrence: CA)
  Receive Date: 20230206
  Receipt Date: 20230206
  Transmission Date: 20230418
  Serious: Yes (Other)
  Sender: FDA-Public Use
  Company Number: CA-CELLTRION INC.-2023CA002487

PATIENT

DRUGS (1)
  1. TRUXIMA [Suspect]
     Active Substance: RITUXIMAB-ABBS
     Indication: Warm autoimmune haemolytic anaemia
     Dosage: 750 MG IV WEEKLY X 4 WEEKS (4X500 MG VIALS + 12 X 100 MG VIALS = 3200 MG; IF 100 MG VIALS ARE UNAVAI
     Route: 042

REACTIONS (2)
  - Warm autoimmune haemolytic anaemia [Unknown]
  - Off label use [Unknown]
